FAERS Safety Report 13188111 (Version 1)
Quarter: 2017Q1

REPORT INFORMATION
  Report Type: Spontaneous
  Country: US (occurrence: US)
  Receive Date: 20170206
  Receipt Date: 20170206
  Transmission Date: 20170428
  Serious: Yes (Hospitalization)
  Sender: FDA-Public Use
  Company Number: US-DRREDDYS-USA/USA/17/0086768

PATIENT
  Sex: Male
  Weight: 54.4 kg

DRUGS (6)
  1. CERA VE MOISTURIZING 1 PERCENT PRAMOXINE LOTION [Concomitant]
     Indication: PRODUCT USED FOR UNKNOWN INDICATION
     Route: 065
     Dates: start: 20161208
  2. ZENATANE [Suspect]
     Active Substance: ISOTRETINOIN
     Indication: ACNE
     Dosage: AT 1AM AND 2PM
     Route: 048
     Dates: start: 20161110, end: 20161223
  3. AMOXICILLIN. [Suspect]
     Active Substance: AMOXICILLIN
     Indication: ACNE
     Route: 048
     Dates: start: 20160929, end: 20161231
  4. HC BUTYRATE LIPOPHILIC CREAM [Concomitant]
     Indication: PRODUCT USED FOR UNKNOWN INDICATION
     Route: 065
     Dates: start: 20161208
  5. CLINDAMYCIN. [Concomitant]
     Active Substance: CLINDAMYCIN
     Indication: PRODUCT USED FOR UNKNOWN INDICATION
     Route: 065
  6. TRETINOIN. [Concomitant]
     Active Substance: TRETINOIN
     Indication: PRODUCT USED FOR UNKNOWN INDICATION
     Route: 065

REACTIONS (4)
  - Abdominal discomfort [Unknown]
  - Weight decreased [Unknown]
  - Nausea [Unknown]
  - Abdominal pain upper [Unknown]
